FAERS Safety Report 10367167 (Version 1)
Quarter: 2014Q3

REPORT INFORMATION
  Report Type: Report from Study
  Country: GB (occurrence: GB)
  Receive Date: 20140807
  Receipt Date: 20140807
  Transmission Date: 20150326
  Serious: Yes (Other)
  Sender: FDA-Public Use
  Company Number: GB-BRISTOL-MYERS SQUIBB COMPANY-21260260

PATIENT
  Age: 63 Year
  Sex: Male

DRUGS (12)
  1. FOLIC ACID. [Concomitant]
     Active Substance: FOLIC ACID
  2. BUMETANIDE. [Concomitant]
     Active Substance: BUMETANIDE
  3. TADALAFIL [Concomitant]
     Active Substance: TADALAFIL
  4. PARACETAMOL [Concomitant]
     Active Substance: ACETAMINOPHEN
     Dosage: 1 DF=2
  5. ABATACEPT SUBQ INJECTION 125MG/ML [Suspect]
     Active Substance: ABATACEPT
     Indication: RHEUMATOID ARTHRITIS
     Route: 058
     Dates: start: 20140424, end: 20140708
  6. METOLAZONE. [Concomitant]
     Active Substance: METOLAZONE
  7. METHOTREXATE [Suspect]
     Active Substance: METHOTREXATE
  8. GABAPENTIN. [Concomitant]
     Active Substance: GABAPENTIN
  9. WARFARIN [Concomitant]
     Active Substance: WARFARIN
  10. OMEPRAZOLE. [Concomitant]
     Active Substance: OMEPRAZOLE
  11. METFORMIN [Concomitant]
     Active Substance: METFORMIN HYDROCHLORIDE
  12. DIGOXIN. [Concomitant]
     Active Substance: DIGOXIN

REACTIONS (1)
  - Cardiac failure congestive [Not Recovered/Not Resolved]

NARRATIVE: CASE EVENT DATE: 201404
